FAERS Safety Report 6763767-3 (Version None)
Quarter: 2010Q2

REPORT INFORMATION
  Report Type: 
  Country: None (occurrence: None)
  Receive Date: 20100608
  Receipt Date: 20100525
  Transmission Date: 20101027
  Serious: Yes (Hospitalization)
  Sender: FDA-Public Use
  Company Number: ALK_01299_2010

PATIENT
  Sex: Male
  Weight: 68.9467 kg

DRUGS (4)
  1. VIVITROL [Suspect]
     Indication: ALCOHOLISM
     Dosage: 380 MG 1X/MONTH INTRAMUSCULAR
     Route: 030
     Dates: start: 20100101
  2. VIVITROL [Suspect]
     Indication: DRUG DEPENDENCE
     Dosage: 380 MG 1X/MONTH INTRAMUSCULAR
     Route: 030
     Dates: start: 20100101
  3. SEROQUEL [Concomitant]
  4. NEURONTIN [Concomitant]

REACTIONS (8)
  - ANXIETY [None]
  - BLOOD PRESSURE INCREASED [None]
  - CHEST PAIN [None]
  - DYSPNOEA [None]
  - RENAL IMPAIRMENT [None]
  - RENAL INJURY [None]
  - RENAL PAIN [None]
  - ROAD TRAFFIC ACCIDENT [None]
